FAERS Safety Report 13490195 (Version 1)
Quarter: 2017Q2

REPORT INFORMATION
  Report Type: Spontaneous
  Country: IT (occurrence: IT)
  Receive Date: 20170427
  Receipt Date: 20170427
  Transmission Date: 20170830
  Serious: Yes (Other)
  Sender: FDA-Public Use
  Company Number: IT-SA-2017SA074824

PATIENT
  Age: 59 Year
  Sex: Male
  Weight: 74 kg

DRUGS (5)
  1. ETAPIAM [Suspect]
     Active Substance: ETHAMBUTOL HYDROCHLORIDE
     Indication: ADRENAL GLAND TUBERCULOSIS
     Route: 048
     Dates: start: 20110701, end: 20110826
  2. CORTONE [Concomitant]
     Active Substance: CORTISONE ACETATE
     Indication: ADRENAL INSUFFICIENCY
     Route: 048
     Dates: start: 20110606
  3. RIFINAH [Suspect]
     Active Substance: ISONIAZID\RIFAMPIN
     Indication: ADRENAL GLAND TUBERCULOSIS
     Route: 048
     Dates: start: 20110701, end: 20110826
  4. ANTRA [Concomitant]
     Active Substance: OMEPRAZOLE
     Route: 048
     Dates: start: 20110606, end: 20111031
  5. PIRALDINA [Suspect]
     Active Substance: PYRAZINAMIDE
     Indication: ADRENAL GLAND TUBERCULOSIS
     Route: 048
     Dates: start: 20110701, end: 20110826

REACTIONS (5)
  - Alanine aminotransferase increased [Recovered/Resolved]
  - Back pain [Recovered/Resolved]
  - Metamorphopsia [Recovered/Resolved]
  - Hepatotoxicity [Recovered/Resolved]
  - Aspartate aminotransferase increased [Recovered/Resolved]

NARRATIVE: CASE EVENT DATE: 20110808
